FAERS Safety Report 8366045-4 (Version None)
Quarter: 2012Q2

REPORT INFORMATION
  Report Type: 
  Country: None (occurrence: None)
  Receive Date: 20120517
  Receipt Date: 20120515
  Transmission Date: 20120825
  Serious: No
  Sender: FDA-Public Use
  Company Number: US-ASTRAZENECA-2011SE45681

PATIENT
  Age: 45 Year
  Sex: Male
  Weight: 103.9 kg

DRUGS (29)
  1. FERROUS SULFATE TAB [Concomitant]
     Dates: start: 20070118
  2. FERROUS SULFATE TAB [Concomitant]
     Dates: start: 20070129
  3. TORADOL [Concomitant]
     Dates: start: 20060901
  4. TRICOR [Concomitant]
     Route: 048
     Dates: start: 20071004
  5. ROBAXIN [Concomitant]
     Dates: start: 20070911
  6. ZOFRAN [Concomitant]
     Route: 048
     Dates: start: 20071004
  7. CALCIUM [Concomitant]
  8. CARAFATE [Concomitant]
  9. NEURONTIN [Concomitant]
     Route: 048
     Dates: start: 20070917
  10. MEDROL [Concomitant]
     Dates: start: 20060901
  11. NEXIUM [Suspect]
     Route: 048
     Dates: start: 20070129
  12. NEURONTIN [Concomitant]
     Route: 048
     Dates: start: 20071004
  13. OXYCONTIN [Concomitant]
     Route: 048
     Dates: start: 20071004
  14. NEXIUM [Suspect]
     Indication: EROSIVE OESOPHAGITIS
     Route: 048
     Dates: start: 20070101
  15. NEXIUM [Suspect]
     Route: 048
     Dates: start: 20070118
  16. PERCOCET [Concomitant]
     Indication: PAIN
     Dosage: 5/325 1 BID PRN
     Dates: start: 20070709
  17. MAGNESIUM OXIDE [Concomitant]
     Route: 048
     Dates: start: 20070118
  18. REGLAN [Concomitant]
     Route: 048
     Dates: start: 20071004
  19. ZETIA [Concomitant]
     Route: 048
     Dates: start: 20071004
  20. NEXIUM [Suspect]
     Route: 048
     Dates: start: 20070120
  21. ROBAXIN [Concomitant]
     Dates: start: 20070711
  22. OMACOR [Concomitant]
     Dates: start: 20071004
  23. TRICOR [Concomitant]
     Route: 048
     Dates: start: 20070922
  24. PHENERGAN [Concomitant]
     Route: 048
     Dates: start: 20071004
  25. NEXIUM [Suspect]
     Dosage: BID
     Route: 048
     Dates: start: 20070101, end: 20070920
  26. NEXIUM [Suspect]
     Route: 048
     Dates: end: 20071004
  27. ALLEGRA [Concomitant]
     Dosage: 60 TO 120 MG
     Route: 048
     Dates: start: 20071004
  28. REGLAN [Concomitant]
     Route: 048
     Dates: start: 20070922
  29. ZETIA [Concomitant]
     Route: 048
     Dates: start: 20070922

REACTIONS (10)
  - THORACIC VERTEBRAL FRACTURE [None]
  - BONE DISORDER [None]
  - FRACTURE [None]
  - PATHOLOGICAL FRACTURE [None]
  - RIB FRACTURE [None]
  - OSTEOPOROSIS [None]
  - COMPRESSION FRACTURE [None]
  - OSTEOARTHRITIS [None]
  - SPINAL COMPRESSION FRACTURE [None]
  - SPINAL FRACTURE [None]
